FAERS Safety Report 5360031-4 (Version None)
Quarter: 2007Q2

REPORT INFORMATION
  Report Type: 
  Country: None (occurrence: None)
  Receive Date: 20070618
  Receipt Date: 20070605
  Transmission Date: 20071010
  Serious: No
  Sender: FDA-Public Use
  Company Number: US-JNJFOC-20070501335

PATIENT
  Age: 35 Year
  Sex: Female

DRUGS (2)
  1. INVEGA [Suspect]
     Indication: DEPRESSION
     Route: 048
  2. INVEGA [Suspect]
     Indication: BIPOLAR DISORDER
     Route: 048

REACTIONS (6)
  - BLOOD PROLACTIN INCREASED [None]
  - DYSPNOEA [None]
  - GALACTORRHOEA [None]
  - LYMPH NODE PAIN [None]
  - OEDEMA PERIPHERAL [None]
  - SNORING [None]
